FAERS Safety Report 9355528 (Version 2)
Quarter: 2013Q3

REPORT INFORMATION
  Report Type: Report from Study
  Country: US (occurrence: US)
  Receive Date: 20130619
  Receipt Date: 20130719
  Transmission Date: 20140515
  Serious: Yes (Hospitalization, Other)
  Sender: FDA-Public Use
  Company Number: US-SANOFI-AVENTIS-2013SA060829

PATIENT
  Age: 47 Year
  Sex: Male
  Weight: 74.8 kg

DRUGS (15)
  1. AUBAGIO [Suspect]
     Indication: PRODUCT USED FOR UNKNOWN INDICATION
     Route: 048
  2. CORTICOTROPIN [Suspect]
     Indication: MULTIPLE SCLEROSIS
     Dates: start: 201303
  3. AMINOPYRIDINE, 2- [Suspect]
     Indication: GAIT DISTURBANCE
     Route: 048
     Dates: start: 201303, end: 20130421
  4. AMINOPYRIDINE, 2- [Suspect]
     Indication: GAIT DISTURBANCE
     Route: 048
     Dates: start: 20130424
  5. TESTOSTERONE [Concomitant]
  6. OXYCODONE HYDROCHLORIDE [Concomitant]
  7. OXYCONTIN [Concomitant]
  8. XANAX [Concomitant]
  9. ADDERALL [Concomitant]
  10. CLARITIN [Concomitant]
  11. PRENATAL [Concomitant]
  12. COSAMIN [Concomitant]
  13. ZOFRAN [Concomitant]
  14. ABILIFY [Concomitant]
  15. ACETYLSALICYLIC ACID/CARISOPRODOL [Concomitant]

REACTIONS (8)
  - Multiple sclerosis relapse [Unknown]
  - Blood potassium abnormal [Unknown]
  - Fall [Unknown]
  - Insomnia [Unknown]
  - Asthenia [Unknown]
  - Balance disorder [Unknown]
  - Constipation [Unknown]
  - Transient ischaemic attack [Unknown]
